FAERS Safety Report 10273583 (Version 1)
Quarter: 2014Q2

REPORT INFORMATION
  Report Type: Spontaneous
  Country: AU (occurrence: None)
  Receive Date: 20140630
  Receipt Date: 20140630
  Transmission Date: 20141212
  Serious: Yes (Other)
  Sender: FDA-Public Use
  Company Number: FK201402509

PATIENT
  Age: 83 Year
  Sex: Female

DRUGS (15)
  1. LEVOTHYROXINE SODIUM [Suspect]
     Indication: PRODUCT USED FOR UNKNOWN INDICATION
  2. FUROSEMIDE [Suspect]
     Indication: PRODUCT USED FOR UNKNOWN INDICATION
  3. PANTOPRAZOLE [Suspect]
     Indication: PRODUCT USED FOR UNKNOWN INDICATION
  4. DABIGATRAN [Suspect]
     Indication: ANTICOAGULANT THERAPY
     Dosage: 1 IN 2 D
  5. MELOXICAM [Suspect]
     Indication: PRODUCT USED FOR UNKNOWN INDICATION
  6. SERTRALINE [Suspect]
     Indication: PRODUCT USED FOR UNKNOWN INDICATION
  7. SIMVASTATIN [Suspect]
     Indication: PRODUCT USED FOR UNKNOWN INDICATION
  8. PHENPROCOUMON [Suspect]
     Indication: ANTICOAGULANT THERAPY
  9. INDAPAMIDE [Suspect]
     Indication: PRODUCT USED FOR UNKNOWN INDICATION
  10. RAMIPRIL [Suspect]
     Indication: PRODUCT USED FOR UNKNOWN INDICATION
  11. DIGITOXIN [Suspect]
     Indication: PRODUCT USED FOR UNKNOWN INDICATION
  12. NEBIVOLOL [Suspect]
     Indication: PRODUCT USED FOR UNKNOWN INDICATION
  13. RISPERIDONE [Suspect]
     Indication: PRODUCT USED FOR UNKNOWN INDICATION
  14. RIVASTIGMIN [Suspect]
     Indication: PRODUCT USED FOR UNKNOWN INDICATION
  15. ENOXAPARIN (ENOXAPARIN) [Concomitant]

REACTIONS (5)
  - Renal impairment [None]
  - Chronic gastritis [None]
  - Gastrointestinal haemorrhage [None]
  - Leukoencephalopathy [None]
  - Anaemia [None]
